FAERS Safety Report 7744370-5 (Version None)
Quarter: 2011Q3

REPORT INFORMATION
  Report Type: 
  Country: None (occurrence: None)
  Receive Date: 20110825
  Receipt Date: 20110818
  Transmission Date: 20111222
  Serious: No
  Sender: FDA-Public Use
  Company Number: 2011SP037725

PATIENT
  Sex: Female

DRUGS (1)
  1. NUVARING [Suspect]
     Indication: CONTRACEPTION
     Dosage: VAG
     Route: 067
     Dates: start: 20110417, end: 20110626

REACTIONS (4)
  - PANIC ATTACK [None]
  - NIGHT SWEATS [None]
  - PALPITATIONS [None]
  - PARAESTHESIA [None]
